FAERS Safety Report 7324508-4 (Version None)
Quarter: 2011Q1

REPORT INFORMATION
  Report Type: 
  Country: None (occurrence: None)
  Receive Date: 20110301
  Receipt Date: 20110203
  Transmission Date: 20110831
  Serious: No
  Sender: FDA-Public Use
  Company Number: US-B.I. PHARMACEUTICALS,INC./RIDGEFIELD-2011-BP-02034BP

PATIENT
  Sex: Male

DRUGS (6)
  1. PRADAXA [Suspect]
     Indication: CORONARY ARTERIAL STENT INSERTION
     Dosage: 300 MG
     Route: 048
     Dates: start: 20110118
  2. AMLODIPINE [Concomitant]
     Indication: CARDIAC DISORDER
     Dosage: 10 MG
     Route: 048
     Dates: start: 20110101
  3. LISINOPRIL [Concomitant]
     Indication: CARDIAC DISORDER
     Dosage: 10 MG
     Route: 048
     Dates: start: 20110101
  4. EFFIENT [Concomitant]
     Indication: CARDIAC DISORDER
     Dosage: 10 MG
     Route: 048
     Dates: start: 20110101
  5. PRADAXA [Suspect]
     Indication: THROMBOSIS PROPHYLAXIS
  6. SIMVASTATIN [Concomitant]
     Indication: CARDIAC DISORDER
     Dosage: 20 MG
     Route: 048
     Dates: start: 20110101

REACTIONS (2)
  - NAUSEA [None]
  - MALAISE [None]
